FAERS Safety Report 22535859 (Version 1)
Quarter: 2023Q2

REPORT INFORMATION
  Report Type: Report from Study
  Country: IN (occurrence: None)
  Receive Date: 20230608
  Receipt Date: 20230608
  Transmission Date: 20230722
  Serious: Yes (Death)
  Sender: FDA-Public Use
  Company Number: IN-ROCHE-3363883

PATIENT
  Age: 68 Year
  Sex: Male
  Weight: 47.8 kg

DRUGS (3)
  1. RITUXIMAB [Suspect]
     Active Substance: RITUXIMAB
     Indication: Diffuse large B-cell lymphoma
     Dosage: RITUXIMAB 375 MG/M2 IV ON DAY 1 OF EACH 21-DAY CYCLE FOR UP TO 8 CYCLES.
     Route: 041
     Dates: start: 20230213
  2. GEMCITABINE [Suspect]
     Active Substance: GEMCITABINE
     Indication: Diffuse large B-cell lymphoma
     Dosage: GEMCITABINE 1000 MG/M2 IV ON DAY 2 OF EACH 21-DAY CYCLE FOR UP TO 8 CYCLES.
     Route: 042
     Dates: start: 20230214
  3. OXALIPLATIN [Suspect]
     Active Substance: OXALIPLATIN
     Indication: Diffuse large B-cell lymphoma
     Dosage: OXALIPLATIN 100 MG/M2 IV ON DAY 2 OF EACH 21-DAY CYCLE FOR UP TO 8 CYCLE.
     Route: 042
     Dates: start: 20230214

REACTIONS (1)
  - Cardiac arrest [Fatal]

NARRATIVE: CASE EVENT DATE: 20230602
